FAERS Safety Report 17519673 (Version 1)
Quarter: 2020Q1

REPORT INFORMATION
  Report Type: Spontaneous
  Country: US (occurrence: US)
  Receive Date: 20200309
  Receipt Date: 20200309
  Transmission Date: 20200409
  Serious: No
  Sender: FDA-Public Use
  Company Number: US-BAUSCH-BL-2020-005959

PATIENT
  Sex: Male
  Weight: 90.72 kg

DRUGS (3)
  1. FOSINOPRIL [Concomitant]
     Active Substance: FOSINOPRIL
     Indication: BLOOD PRESSURE ABNORMAL
  2. ATIVAN [Suspect]
     Active Substance: LORAZEPAM
     Dosage: DOSE REDUCED
     Route: 065
     Dates: end: 2018
  3. ATIVAN [Suspect]
     Active Substance: LORAZEPAM
     Indication: PRODUCT USED FOR UNKNOWN INDICATION
     Dosage: OVER A YEAR
     Route: 065

REACTIONS (10)
  - Emphysema [Not Recovered/Not Resolved]
  - Panic disorder [Not Recovered/Not Resolved]
  - Insurance issue [Unknown]
  - Loss of employment [Unknown]
  - Therapy cessation [Unknown]
  - Sleep disorder [Recovered/Resolved]
  - Depression [Not Recovered/Not Resolved]
  - Dyspnoea [Not Recovered/Not Resolved]
  - Anxiety [Not Recovered/Not Resolved]
  - Hypersensitivity [Not Recovered/Not Resolved]
